FAERS Safety Report 15908996 (Version 1)
Quarter: 2019Q1

REPORT INFORMATION
  Report Type: Spontaneous
  Country: US (occurrence: US)
  Receive Date: 20190204
  Receipt Date: 20190204
  Transmission Date: 20190417
  Serious: Yes (Other)
  Sender: FDA-Public Use
  Company Number: US-ALLERGAN-1904375US

PATIENT
  Age: 50 Year
  Sex: Female
  Weight: 55.33 kg

DRUGS (5)
  1. JUVEDERM [Concomitant]
     Active Substance: HYALURONIC ACID
     Indication: SKIN WRINKLING
     Dosage: UNK
     Dates: start: 201810, end: 201810
  2. RESTYLANE [Concomitant]
     Active Substance: HYALURONIC ACID
     Indication: SKIN WRINKLING
     Dosage: UNK
  3. VITAMINS [Concomitant]
     Active Substance: VITAMINS
     Indication: SUPPLEMENTATION THERAPY
  4. BOTOX COSMETIC [Suspect]
     Active Substance: ONABOTULINUMTOXINA
     Indication: SKIN WRINKLING
     Dosage: 24 UNITS, SINGLE
     Route: 030
  5. BOTOX COSMETIC [Suspect]
     Active Substance: ONABOTULINUMTOXINA
     Indication: SKIN WRINKLING

REACTIONS (2)
  - Squamous cell carcinoma of skin [Recovered/Resolved]
  - Skin disorder [Recovered/Resolved]

NARRATIVE: CASE EVENT DATE: 2017
